FAERS Safety Report 10464998 (Version 1)
Quarter: 2014Q3

REPORT INFORMATION
  Report Type: Spontaneous
  Country: MX (occurrence: MX)
  Receive Date: 20140919
  Receipt Date: 20140919
  Transmission Date: 20150326
  Serious: Yes (Other)
  Sender: FDA-Public Use
  Company Number: MX-GLAXOSMITHKLINE-A1089884A

PATIENT
  Age: 49 Year
  Sex: Female
  Weight: 120 kg

DRUGS (5)
  1. ANTIBIOTIC [Concomitant]
     Active Substance: UNSPECIFIED INGREDIENT
     Indication: RESPIRATORY TRACT INFECTION
     Dates: start: 20140716
  2. ANTIMYCOTIC [Concomitant]
     Dates: start: 20140716
  3. COMBIVENT [Concomitant]
     Active Substance: ALBUTEROL SULFATE\IPRATROPIUM BROMIDE
     Indication: ASTHMA
     Dates: start: 20140716
  4. RELVARE [Suspect]
     Active Substance: FLUTICASONE FUROATE\VILANTEROL TRIFENATATE
     Indication: ASTHMA
     Dosage: 1PUFF PER DAY
     Route: 055
     Dates: start: 20140716, end: 20140824
  5. DIURETIC [Concomitant]
     Active Substance: UNSPECIFIED INGREDIENT
     Indication: OEDEMA
     Dates: start: 20140716

REACTIONS (5)
  - Cough [Recovering/Resolving]
  - Oxygen saturation decreased [Recovering/Resolving]
  - Asthma [Recovering/Resolving]
  - Stress urinary incontinence [Recovering/Resolving]
  - Oxygen supplementation [Recovered/Resolved]

NARRATIVE: CASE EVENT DATE: 201408
